FAERS Safety Report 11659363 (Version 5)
Quarter: 2015Q4

REPORT INFORMATION
  Report Type: Report from Study
  Country: ES (occurrence: ES)
  Receive Date: 20151026
  Receipt Date: 20151203
  Transmission Date: 20160304
  Serious: Yes (Hospitalization)
  Sender: FDA-Public Use
  Company Number: ES-TEVA-603933USA

PATIENT
  Age: 53 Year
  Sex: Male

DRUGS (13)
  1. ONDANSETRON [Concomitant]
     Active Substance: ONDANSETRON
     Indication: PROPHYLAXIS
     Route: 042
     Dates: start: 20151007, end: 20151009
  2. BENDAMUSTINE HYDROCHLORIDE [Suspect]
     Active Substance: BENDAMUSTINE HYDROCHLORIDE
     Indication: CHRONIC LYMPHOCYTIC LEUKAEMIA
     Dosage: 90 MG/M2, CYCLIC (CYCLE 1 DAY 1)
     Route: 042
     Dates: start: 20151007, end: 20151008
  3. OBINUTUZUMAB [Suspect]
     Active Substance: OBINUTUZUMAB
     Indication: CHRONIC LYMPHOCYTIC LEUKAEMIA
     Dosage: 25 MG, CYCLIC (CYCLE 1 DAY 1)
     Route: 042
     Dates: start: 20151007, end: 20151008
  4. PARACETAMOL [Concomitant]
     Active Substance: ACETAMINOPHEN
     Indication: EMPHYSEMA
     Dosage: 1 G, SINGLE DOSE
     Route: 042
     Dates: start: 20151007, end: 20151007
  5. DEXAMETHASONE. [Concomitant]
     Active Substance: DEXAMETHASONE
     Indication: PROPHYLAXIS
     Dosage: 20 MG, SINGLE DOSE
     Route: 048
     Dates: start: 20151006, end: 20151006
  6. DEXAMETHASONE. [Concomitant]
     Active Substance: DEXAMETHASONE
     Dosage: 20 MG, SINGLE DOSE
     Route: 048
     Dates: start: 20151008, end: 20151008
  7. ALLOPURINOL. [Concomitant]
     Active Substance: ALLOPURINOL
     Route: 048
     Dates: start: 20151008
  8. PARACETAMOL [Concomitant]
     Active Substance: ACETAMINOPHEN
     Dosage: 1 G, SINGLE DOSE
     Route: 042
     Dates: start: 20151008, end: 20151008
  9. PARACETAMOL [Concomitant]
     Active Substance: ACETAMINOPHEN
     Indication: MIGRAINE
     Dosage: 1 G, SINGLE DOSE
     Route: 042
     Dates: start: 20151006, end: 20151006
  10. DEXAMETHASONE. [Concomitant]
     Active Substance: DEXAMETHASONE
     Dosage: 20 MG, SINGLE DOSE
     Route: 048
     Dates: start: 20151007, end: 20151007
  11. ALLOPURINOL. [Concomitant]
     Active Substance: ALLOPURINOL
     Indication: PROPHYLAXIS
     Route: 048
     Dates: start: 20151002, end: 20151002
  12. ENANTYUM [Concomitant]
     Active Substance: DEXKETOPROFEN TROMETAMOL
     Indication: MIGRAINE
     Route: 042
     Dates: start: 20151007, end: 20151008
  13. DEXCLORFENIRAMINA [Concomitant]
     Indication: PRODUCT USED FOR UNKNOWN INDICATION
     Dosage: UNK, UNKNOWN FREQ.
     Route: 065

REACTIONS (3)
  - Aspartate aminotransferase increased [Recovered/Resolved]
  - Alanine aminotransferase increased [Recovered/Resolved]
  - Gamma-glutamyltransferase increased [Recovered/Resolved]

NARRATIVE: CASE EVENT DATE: 20151008
